FAERS Safety Report 9260206 (Version 2)
Quarter: 2013Q2

REPORT INFORMATION
  Report Type: Spontaneous
  Country: US (occurrence: US)
  Receive Date: 20130429
  Receipt Date: 20130528
  Transmission Date: 20140414
  Serious: Yes (Other)
  Sender: FDA-Public Use
  Company Number: US-PFIZER INC-2013131041

PATIENT
  Age: 64 Year
  Sex: Female
  Weight: 88.44 kg

DRUGS (14)
  1. XELJANZ [Suspect]
     Indication: RHEUMATOID ARTHRITIS
     Dosage: 5 MG, 2X/DAY
     Route: 048
  2. LACTULOSE [Concomitant]
     Dosage: 10GM /15
  3. ATENOLOL [Concomitant]
     Dosage: 100 MG, UNK
  4. AMITIZA [Concomitant]
     Dosage: 24 UG, UNK
  5. OMEPRAZOLE [Concomitant]
     Dosage: 20.6 MG, UNK
  6. TOPIRAMATE [Concomitant]
     Dosage: 25 MG, UNK
  7. CYMBALTA [Concomitant]
     Dosage: 20 MG, UNK
  8. CRESTOR [Concomitant]
     Dosage: 10 MG, UNK
  9. NEURONTIN [Concomitant]
     Dosage: 100 MG, UNK
  10. BABY ASPIRIN [Concomitant]
     Dosage: 81 MG, UNK
  11. TRAMADOL HYDROCHLORIDE [Concomitant]
     Dosage: 150 MG, UNK
  12. OXYCODONE [Concomitant]
     Dosage: 5 MG, UNK
  13. VENTOLIN [Concomitant]
     Dosage: UNK
  14. LINZESS [Concomitant]
     Dosage: 145 UG, UNK

REACTIONS (4)
  - Deafness [Unknown]
  - Migraine [Unknown]
  - Weight increased [Unknown]
  - Circumstance or information capable of leading to medication error [Unknown]
